FAERS Safety Report 7906982-5 (Version None)
Quarter: 2011Q4

REPORT INFORMATION
  Report Type: 
  Country: None (occurrence: None)
  Receive Date: 20111110
  Receipt Date: 20111101
  Transmission Date: 20120403
  Serious: Yes (Hospitalization)
  Sender: FDA-Public Use
  Company Number: CA-JNJFOC-20111103181

PATIENT
  Sex: Female
  Weight: 56.4 kg

DRUGS (3)
  1. REMICADE [Suspect]
     Indication: CROHN'S DISEASE
     Route: 042
     Dates: start: 20060530
  2. ALPRAZOLAM [Concomitant]
  3. TRAMADOL HYDROCHLORIDE/ACETAMINOPHEN [Concomitant]

REACTIONS (2)
  - TOOTHACHE [None]
  - CYST RUPTURE [None]
